FAERS Safety Report 8289300-5 (Version None)
Quarter: 2012Q2

REPORT INFORMATION
  Report Type: 
  Country: None (occurrence: None)
  Receive Date: 20120417
  Receipt Date: 20120416
  Transmission Date: 20120825
  Serious: Yes (Hospitalization)
  Sender: FDA-Public Use
  Company Number: PHHY2012NL031876

PATIENT
  Sex: Male

DRUGS (4)
  1. ZOMETA [Suspect]
     Dosage: 4 MG/100 ML  1X PER 28 DAYS
     Route: 042
     Dates: start: 20120305
  2. ZOMETA [Suspect]
     Dosage: 4 MG/100 ML  1X PER 28 DAYS
     Route: 042
     Dates: start: 20110818
  3. ZOMETA [Suspect]
     Indication: PROSTATE CANCER METASTATIC
     Dosage: 4 MG/100 ML  1X PER 28 DAYS
     Route: 042
  4. ZOMETA [Suspect]
     Dosage: 4 MG/100 ML  1X PER 28 DAYS
     Route: 042
     Dates: start: 20120203

REACTIONS (2)
  - MYOCARDIAL INFARCTION [None]
  - PULMONARY EMBOLISM [None]
